FAERS Safety Report 6997524-X (Version None)
Quarter: 2010Q3

REPORT INFORMATION
  Report Type: 
  Country: None (occurrence: None)
  Receive Date: 20100918
  Receipt Date: 20091014
  Transmission Date: 20110219
  Serious: No
  Sender: FDA-Public Use
  Company Number: US-WYE-H11674909

PATIENT
  Sex: Female

DRUGS (13)
  1. EFFEXOR XR [Suspect]
     Indication: DEPRESSION
     Route: 048
     Dates: start: 20091010
  2. GLUCOPHAGE [Concomitant]
  3. LANTUS [Concomitant]
  4. AMAREL [Concomitant]
  5. ALDACTONE [Concomitant]
  6. COMPAZINE [Concomitant]
  7. VITAMIN D [Concomitant]
  8. POTASSIUM [Concomitant]
  9. VALIUM [Concomitant]
  10. ATARAX [Concomitant]
  11. ZOFRAN [Concomitant]
  12. SYNTHROID [Concomitant]
  13. LASIX [Concomitant]

REACTIONS (3)
  - BURNING SENSATION [None]
  - EYE PAIN [None]
  - LACRIMATION INCREASED [None]
